FAERS Safety Report 25032183 (Version 1)
Quarter: 2025Q1

REPORT INFORMATION
  Report Type: Spontaneous
  Country: US (occurrence: US)
  Receive Date: 20250303
  Receipt Date: 20250303
  Transmission Date: 20250408
  Serious: No
  Sender: Haleon PLC
  Company Number: US-HALEON-2230912

PATIENT

DRUGS (1)
  1. THERAFLU SEVERE COLD RELIEF NIGHTTIME SOFT CHEWS [Suspect]
     Active Substance: ACETAMINOPHEN\DIPHENHYDRAMINE HYDROCHLORIDE
     Indication: Product used for unknown indication

REACTIONS (2)
  - Vomiting [Unknown]
  - Drug ineffective [Unknown]
